FAERS Safety Report 18225705 (Version 2)
Quarter: 2020Q3

REPORT INFORMATION
  Report Type: Report from Study
  Country: US (occurrence: US)
  Receive Date: 20200903
  Receipt Date: 20200913
  Transmission Date: 20201103
  Serious: Yes (Death, Life-Threatening, Hospitalization)
  Sender: FDA-Public Use
  Company Number: US-BAXTER-2020BAX017901

PATIENT
  Age: 3 Year
  Sex: Male
  Weight: 10 kg

DRUGS (6)
  1. VINORELBINE TARTRATE. [Concomitant]
     Active Substance: VINORELBINE TARTRATE
     Indication: EMBRYONAL RHABDOMYOSARCOMA
     Route: 042
  2. TEMSIROLIMUS. [Suspect]
     Active Substance: TEMSIROLIMUS
     Indication: EMBRYONAL RHABDOMYOSARCOMA
     Dosage: COURSE 1 TO 15, TOTAL DOSE ADMINISTERED IN COURSE 15 WAS 0 MG, LAST DOSE PRIOR TO SAE
     Route: 042
     Dates: start: 20190923, end: 20200707
  3. VINCRISTINE SULFATE. [Suspect]
     Active Substance: VINCRISTINE SULFATE
     Indication: EMBRYONAL RHABDOMYOSARCOMA
     Dosage: COURSE 1 TO 15
     Route: 042
     Dates: start: 20190923
  4. VINCRISTINE SULFATE. [Suspect]
     Active Substance: VINCRISTINE SULFATE
     Dosage: TOTAL DOSE ADMINISTERED IN COURSE 15 WAS 24 MG, LAST DOSE PRIOR TO SAE
     Route: 042
     Dates: start: 20200727, end: 20200727
  5. VINCRISTINE SULFATE. [Suspect]
     Active Substance: VINCRISTINE SULFATE
     Route: 042
     Dates: start: 20200720
  6. CYCLOPHOSPHAMIDE FOR INJECTION, USP [Suspect]
     Active Substance: CYCLOPHOSPHAMIDE
     Indication: EMBRYONAL RHABDOMYOSARCOMA
     Dosage: COURSE 1 TO 15, TOTAL DOSE ADMINISTERED IN COURSE 15 WAS 0 MG, LAST DOSE PRIOR TO SAE
     Route: 042
     Dates: start: 20190923, end: 20200623

REACTIONS (3)
  - Acute kidney injury [Unknown]
  - Sepsis [Fatal]
  - Large intestinal obstruction [Unknown]

NARRATIVE: CASE EVENT DATE: 20200803
